FAERS Safety Report 7756402-9 (Version None)
Quarter: 2011Q3

REPORT INFORMATION
  Report Type: 
  Country: None (occurrence: None)
  Receive Date: 20110916
  Receipt Date: 20110915
  Transmission Date: 20111222
  Serious: Yes (Other)
  Sender: FDA-Public Use
  Company Number: US-ROCHE-802590

PATIENT
  Sex: Female

DRUGS (12)
  1. ACCUTANE [Suspect]
     Route: 065
     Dates: start: 19980101
  2. ACCUTANE [Suspect]
     Route: 065
     Dates: start: 20050101
  3. CLARAVIS [Suspect]
     Indication: ACNE
     Route: 065
     Dates: start: 19890101
  4. ACCUTANE [Suspect]
     Route: 065
     Dates: start: 19890101
  5. CLARAVIS [Suspect]
     Route: 065
     Dates: start: 19980101
  6. SOTRET [Suspect]
     Indication: ACNE
     Route: 065
     Dates: start: 19890101
  7. AMNESTEEM [Suspect]
     Indication: ACNE
     Route: 065
     Dates: start: 19890101
  8. AMNESTEEM [Suspect]
     Route: 065
     Dates: start: 20050101
  9. CLARAVIS [Suspect]
     Route: 065
     Dates: start: 20050101
  10. SOTRET [Suspect]
     Route: 065
     Dates: start: 19980101
  11. AMNESTEEM [Suspect]
     Route: 065
     Dates: start: 19980101
  12. SOTRET [Suspect]
     Route: 065
     Dates: start: 20050101

REACTIONS (2)
  - ANXIETY [None]
  - INFLAMMATORY BOWEL DISEASE [None]
